FAERS Safety Report 25574973 (Version 1)
Quarter: 2025Q3

REPORT INFORMATION
  Report Type: Spontaneous
  Country: EU (occurrence: EU)
  Receive Date: 20250718
  Receipt Date: 20250718
  Transmission Date: 20251020
  Serious: Yes (Other)
  Sender: TEVA
  Company Number: None

PATIENT
  Age: 32 Year
  Sex: Female
  Weight: 54 kg

DRUGS (5)
  1. VALACYCLOVIR HYDROCHLORIDE [Suspect]
     Active Substance: VALACYCLOVIR HYDROCHLORIDE
     Indication: Genital herpes simplex
     Dosage: VALACICLOVIR TEVA, 42 TABLETS, 1 TABLET PER DAY
     Route: 048
     Dates: start: 20250702
  2. PENILEVEL [Concomitant]
     Indication: Tonsillitis
     Dosage: 20 CAPSULES, EVERY 12H FOR A WEEK
     Route: 065
     Dates: start: 20250613
  3. PENILEVEL [Concomitant]
     Indication: Tonsillitis
     Dosage: 20 CAPSULES, ONE TABLET EVERY 12 HOURS FOR ONE WEEK
     Route: 048
     Dates: start: 20250502, end: 20250508
  4. PENILEVEL [Concomitant]
     Indication: Tonsillitis
     Route: 030
     Dates: start: 20250612, end: 20250612
  5. VALTREX [Concomitant]
     Active Substance: VALACYCLOVIR HYDROCHLORIDE
     Indication: Genital herpes simplex
     Dosage: 42 TABLETS, ONE TABLET A DAY
     Route: 065
     Dates: start: 20250224, end: 20250630

REACTIONS (3)
  - Genital herpes simplex [Recovering/Resolving]
  - Drug ineffective [Recovering/Resolving]
  - Condition aggravated [Recovering/Resolving]

NARRATIVE: CASE EVENT DATE: 20250703
